FAERS Safety Report 5241809-4 (Version None)
Quarter: 2007Q1

REPORT INFORMATION
  Report Type: 
  Country: None (occurrence: None)
  Receive Date: 20070220
  Receipt Date: 20070206
  Transmission Date: 20070707
  Serious: Yes (Hospitalization)
  Sender: FDA-Public Use
  Company Number: US-BRISTOL-MYERS SQUIBB COMPANY-13671474

PATIENT
  Age: 58 Year
  Sex: Female

DRUGS (4)
  1. ATENOLOL [Suspect]
  2. DILTIAZEM HCL [Suspect]
     Dosage: 360MG A.M/240MG P.M(INCREASED FROM 120MG 6 MONTHS AGO)
  3. CAPTOPRIL [Suspect]
  4. HYDROCHLOROTHIAZIDE [Concomitant]

REACTIONS (8)
  - ASTHENIA [None]
  - BLOOD CREATININE INCREASED [None]
  - BRADYCARDIA [None]
  - HYPERGLYCAEMIA [None]
  - HYPERKALAEMIA [None]
  - HYPOTENSION [None]
  - NODAL ARRHYTHMIA [None]
  - SYNCOPE [None]
